FAERS Safety Report 23725315 (Version 2)
Quarter: 2024Q3

REPORT INFORMATION
  Report Type: Spontaneous
  Country: FR (occurrence: FR)
  Receive Date: 20240410
  Receipt Date: 20240704
  Transmission Date: 20241016
  Serious: Yes (Hospitalization)
  Sender: TEVA
  Company Number: None

PATIENT
  Age: 40 Year
  Sex: Female

DRUGS (3)
  1. OMEPRAZOLE [Suspect]
     Active Substance: OMEPRAZOLE
     Indication: Gastrooesophageal reflux disease
     Route: 048
     Dates: start: 20240216, end: 20240223
  2. LEVONORGESTREL [Concomitant]
     Active Substance: LEVONORGESTREL
     Indication: Product used for unknown indication
     Route: 065
  3. BACTRIM [Suspect]
     Active Substance: SULFAMETHOXAZOLE\TRIMETHOPRIM
     Indication: Urinary tract infection
     Dosage: COMPRESSED
     Route: 048
     Dates: start: 20240216, end: 20240221

REACTIONS (3)
  - Rash maculo-papular [Recovered/Resolved]
  - Eosinophilia [Recovered/Resolved]
  - Face oedema [Recovered/Resolved]

NARRATIVE: CASE EVENT DATE: 20240222
